FAERS Safety Report 7485738-4 (Version None)
Quarter: 2011Q2

REPORT INFORMATION
  Report Type: 
  Country: None (occurrence: None)
  Receive Date: 20110517
  Receipt Date: 20091122
  Transmission Date: 20111010
  Serious: Yes (Death, Other)
  Sender: FDA-Public Use
  Company Number: US-BAYER-200939953NA

PATIENT
  Age: 75 Year
  Sex: Female

DRUGS (5)
  1. PROCRIT [Concomitant]
  2. COUMADIN [Concomitant]
  3. LASIX [Concomitant]
  4. TRASYLOL [Suspect]
     Indication: MITRAL VALVE REPLACEMENT
     Dosage: UNK
     Route: 042
     Dates: start: 20051214
  5. TOPROL-XL [Concomitant]

REACTIONS (14)
  - EMOTIONAL DISTRESS [None]
  - STRESS [None]
  - RENAL FAILURE [None]
  - CARDIAC FAILURE [None]
  - FEAR [None]
  - RENAL INJURY [None]
  - ANXIETY [None]
  - DEATH [None]
  - MULTI-ORGAN FAILURE [None]
  - RENAL IMPAIRMENT [None]
  - PAIN [None]
  - INJURY [None]
  - UNEVALUABLE EVENT [None]
  - ANHEDONIA [None]
